FAERS Safety Report 7365236-9 (Version None)
Quarter: 2011Q1

REPORT INFORMATION
  Report Type: 
  Country: None (occurrence: None)
  Receive Date: 20110322
  Receipt Date: 20110311
  Transmission Date: 20110831
  Serious: Yes (Hospitalization, Other)
  Sender: FDA-Public Use
  Company Number: DE-BIOGENIDEC-2009BI041988

PATIENT
  Age: 34 Year
  Sex: Female

DRUGS (4)
  1. INSULIN [Concomitant]
     Indication: GESTATIONAL DIABETES
  2. FOLIC ACID [Concomitant]
  3. IRON [Concomitant]
     Indication: ANAEMIA
  4. TYSABRI [Suspect]
     Indication: MULTIPLE SCLEROSIS
     Route: 042
     Dates: start: 20070712, end: 20091201

REACTIONS (2)
  - PREGNANCY [None]
  - PREMATURE RUPTURE OF MEMBRANES [None]
